FAERS Safety Report 7773416-3 (Version None)
Quarter: 2011Q3

REPORT INFORMATION
  Report Type: 
  Country: None (occurrence: None)
  Receive Date: 20110922
  Receipt Date: 20110919
  Transmission Date: 20111222
  Serious: Yes (Life-Threatening, Other)
  Sender: FDA-Public Use
  Company Number: GB-ASTRAZENECA-2011SE56032

PATIENT
  Age: 31 Year
  Sex: Male
  Weight: 108 kg

DRUGS (3)
  1. FENTANYL [Concomitant]
  2. PROPOFOL [Suspect]
     Indication: INDUCTION OF ANAESTHESIA
     Route: 042
     Dates: start: 20110831, end: 20110831
  3. ONDANSETRON [Concomitant]

REACTIONS (6)
  - RASH [None]
  - ERYTHEMA [None]
  - TRISMUS [None]
  - TONIC CLONIC MOVEMENTS [None]
  - MUSCLE SPASMS [None]
  - CONVULSION [None]
